FAERS Safety Report 10635195 (Version 2)
Quarter: 2015Q1

REPORT INFORMATION
  Report Type: Spontaneous
  Country: BR (occurrence: BR)
  Receive Date: 20141205
  Receipt Date: 20150119
  Transmission Date: 20150720
  Serious: Yes (Other)
  Sender: FDA-Public Use
  Company Number: PHHY2014BR156547

PATIENT
  Sex: Male

DRUGS (4)
  1. ZOLPIDEM [Concomitant]
     Active Substance: ZOLPIDEM\ZOLPIDEM TARTRATE
     Indication: PRODUCT USED FOR UNKNOWN INDICATION
     Dosage: UNK
     Route: 065
  2. MIRTAZAPINE SANDOZ [Suspect]
     Active Substance: MIRTAZAPINE
     Route: 065
  3. LORAX//LORAZEPAM [Concomitant]
     Indication: PRODUCT USED FOR UNKNOWN INDICATION
     Dosage: UNK
     Route: 065
  4. MIRTAZAPINE SANDOZ [Suspect]
     Active Substance: MIRTAZAPINE
     Indication: SLEEP DISORDER
     Dosage: 30 MG, QD
     Route: 048

REACTIONS (3)
  - Lung neoplasm malignant [Not Recovered/Not Resolved]
  - Haemoptysis [Not Recovered/Not Resolved]
  - Drug administration error [Not Recovered/Not Resolved]
